FAERS Safety Report 5795529-8 (Version None)
Quarter: 2008Q2

REPORT INFORMATION
  Report Type: 
  Country: None (occurrence: None)
  Receive Date: 20080630
  Receipt Date: 20080618
  Transmission Date: 20081010
  Serious: Yes (Other)
  Sender: FDA-Public Use
  Company Number: PHBS2006BR03117

PATIENT
  Sex: Male
  Weight: 21 kg

DRUGS (3)
  1. RITALIN LA [Suspect]
     Indication: PSYCHOMOTOR HYPERACTIVITY
     Dosage: 20 MG, QD
     Route: 048
     Dates: start: 20060214
  2. RITALIN LA [Suspect]
     Dosage: 30 MG, QD
     Route: 048
  3. RISPERIDONE [Concomitant]
     Dosage: 2 MG, BID
     Dates: start: 20060214

REACTIONS (8)
  - ABDOMINAL PAIN [None]
  - AGITATION [None]
  - ANOREXIA [None]
  - CHEST PAIN [None]
  - PHARYNGITIS [None]
  - PYREXIA [None]
  - TACHYCARDIA [None]
  - VOMITING [None]
